FAERS Safety Report 16268864 (Version 1)
Quarter: 2019Q2

REPORT INFORMATION
  Report Type: Spontaneous
  Country: US (occurrence: US)
  Receive Date: 20190503
  Receipt Date: 20190503
  Transmission Date: 20190711
  Serious: No
  Sender: FDA-Public Use
  Company Number: US-ZYDUS-032800

PATIENT
  Age: 36 Year
  Sex: Female

DRUGS (5)
  1. LORAZEPAM. [Concomitant]
     Active Substance: LORAZEPAM
     Indication: PRODUCT USED FOR UNKNOWN INDICATION
     Route: 065
  2. BISOPROLOL [Concomitant]
     Active Substance: BISOPROLOL
     Indication: PRODUCT USED FOR UNKNOWN INDICATION
     Route: 065
  3. PAROXETINE. [Suspect]
     Active Substance: PAROXETINE
     Indication: OBSESSIVE-COMPULSIVE DISORDER
     Route: 048
     Dates: start: 20181222
  4. QUETIAPINE. [Concomitant]
     Active Substance: QUETIAPINE
     Indication: PRODUCT USED FOR UNKNOWN INDICATION
     Route: 065
  5. DIAZEPAM. [Concomitant]
     Active Substance: DIAZEPAM
     Indication: PRODUCT USED FOR UNKNOWN INDICATION
     Route: 065

REACTIONS (6)
  - Chills [Not Recovered/Not Resolved]
  - Insomnia [Not Recovered/Not Resolved]
  - Myoclonus [Not Recovered/Not Resolved]
  - Drug ineffective [Not Recovered/Not Resolved]
  - Agitation [Not Recovered/Not Resolved]
  - Heart rate increased [Not Recovered/Not Resolved]

NARRATIVE: CASE EVENT DATE: 20181230
